FAERS Safety Report 8869043 (Version 2)
Quarter: 2013Q4

REPORT INFORMATION
  Report Type: Report from Study
  Country: DE (occurrence: DE)
  Receive Date: 20121027
  Receipt Date: 20131226
  Transmission Date: 20140711
  Serious: Yes (Other)
  Sender: FDA-Public Use
  Company Number: PHHY2012DE096033

PATIENT
  Sex: Male
  Weight: 94 kg

DRUGS (4)
  1. ICL670A [Suspect]
     Indication: IRON OVERLOAD
     Dosage: 1500 MG, DAILY
     Route: 048
     Dates: start: 20101115, end: 20120614
  2. SIMVASTATIN [Concomitant]
  3. METFORMIN [Concomitant]
  4. DELIX [Concomitant]

REACTIONS (1)
  - Acute myeloid leukaemia [Not Recovered/Not Resolved]
